FAERS Safety Report 6206980-6 (Version None)
Quarter: 2009Q2

REPORT INFORMATION
  Report Type: 
  Country: None (occurrence: None)
  Receive Date: 20090528
  Receipt Date: 20090520
  Transmission Date: 20091009
  Serious: Yes (Hospitalization)
  Sender: FDA-Public Use
  Company Number: B0575977A

PATIENT
  Sex: Female

DRUGS (2)
  1. AMOXIL [Suspect]
     Indication: DRUG USE FOR UNKNOWN INDICATION
     Route: 048
  2. FLAGYL [Concomitant]

REACTIONS (3)
  - HYPERSENSITIVITY [None]
  - PRODUCT QUALITY ISSUE [None]
  - REACTION TO DRUG EXCIPIENTS [None]
